FAERS Safety Report 7951741-0 (Version None)
Quarter: 2011Q4

REPORT INFORMATION
  Report Type: 
  Country: None (occurrence: None)
  Receive Date: 20111201
  Receipt Date: 20111128
  Transmission Date: 20120403
  Serious: Yes (Other)
  Sender: FDA-Public Use
  Company Number: US-JNJFOC-20111000132

PATIENT
  Sex: Female
  Weight: 66.68 kg

DRUGS (2)
  1. DURAGESIC-100 [Suspect]
     Indication: BACK DISORDER
     Route: 062
  2. FENTANYL-100 [Suspect]
     Indication: BACK DISORDER
     Route: 062
     Dates: start: 19970101

REACTIONS (8)
  - DEPRESSION [None]
  - PRODUCT ADHESION ISSUE [None]
  - INTERVERTEBRAL DISC PROTRUSION [None]
  - BREAKTHROUGH PAIN [None]
  - BLOOD CHOLESTEROL INCREASED [None]
  - WRONG TECHNIQUE IN DRUG USAGE PROCESS [None]
  - DERMATITIS [None]
  - DRUG ADMINISTERED AT INAPPROPRIATE SITE [None]
